FAERS Safety Report 21101406 (Version 2)
Quarter: 2022Q3

REPORT INFORMATION
  Report Type: Report from Study
  Country: IL (occurrence: IL)
  Receive Date: 20220719
  Receipt Date: 20220723
  Transmission Date: 20221027
  Serious: Yes (Hospitalization)
  Sender: FDA-Public Use
  Company Number: IL-AMGEN-ISRCT2022122516

PATIENT
  Age: 60 Year
  Sex: Male
  Weight: 83.4 kg

DRUGS (10)
  1. SOTORASIB [Suspect]
     Active Substance: SOTORASIB
     Indication: Non-small cell lung cancer stage IV
     Dosage: 960 MILLIGRAM
     Route: 048
     Dates: start: 20220609
  2. SOTORASIB [Suspect]
     Active Substance: SOTORASIB
     Indication: K-ras gene mutation
  3. METAMIZOLE [Concomitant]
     Active Substance: METAMIZOLE
     Dosage: 40 GTT DROPS
     Route: 048
     Dates: start: 20211129
  4. CANNABIS SATIVA SUBSP. INDICA TOP [Concomitant]
     Active Substance: CANNABIS SATIVA SUBSP. INDICA TOP
     Dosage: 10-30 GRAMS
     Dates: start: 20211227
  5. Miro [Concomitant]
     Dosage: 30 MILLIGRAM
     Route: 048
     Dates: start: 20220118
  6. METHADONE [Concomitant]
     Active Substance: METHADONE HYDROCHLORIDE
     Dosage: 1.8 MILLIGRAM
     Route: 048
     Dates: start: 20220509, end: 20220710
  7. ABSTRAL [Concomitant]
     Active Substance: FENTANYL CITRATE
     Dosage: 400 MICROGRAM
     Route: 050
     Dates: start: 20211128
  8. PECFENT [Concomitant]
     Active Substance: FENTANYL CITRATE
     Dosage: 400 MICROGRAM
     Route: 050
     Dates: start: 20211128
  9. LYRICA [Concomitant]
     Active Substance: PREGABALIN
     Dosage: 150 MILLIGRAM
     Route: 048
     Dates: start: 20160226
  10. ACETAMINOPHEN [Concomitant]
     Active Substance: ACETAMINOPHEN
     Dosage: 500 MILLIGRAM
     Route: 048
     Dates: start: 20211215

REACTIONS (1)
  - Fall [Not Recovered/Not Resolved]

NARRATIVE: CASE EVENT DATE: 20220716
